FAERS Safety Report 7056198-2 (Version None)
Quarter: 2010Q4

REPORT INFORMATION
  Report Type: 
  Country: None (occurrence: None)
  Receive Date: 20101021
  Receipt Date: 20101019
  Transmission Date: 20110411
  Serious: Yes (Hospitalization, Other)
  Sender: FDA-Public Use
  Company Number: GB-WYE-G01084208

PATIENT
  Age: 21 Year
  Sex: Male

DRUGS (4)
  1. IBUPROFEN [Suspect]
     Dosage: OVERDOSE OF 800MG TABLETS
     Route: 048
     Dates: start: 20080128, end: 20080128
  2. ANTIHISTAMINES FOR SYSTEMIC USE [Suspect]
     Dosage: OVERDOSE 3 - 4 TABLETS
     Route: 048
     Dates: start: 20080128, end: 20080128
  3. ETHANOL [Suspect]
     Dosage: 1L VODKA
     Dates: start: 20080128, end: 20080128
  4. SUDAFED 12 HOUR [Suspect]
     Dosage: OVERDOSE OF 8 - 12 TABLETS APPROX. 480-720MG
     Route: 048
     Dates: start: 20080128, end: 20080128

REACTIONS (5)
  - DEHYDRATION [None]
  - DEPRESSION [None]
  - INTENTIONAL OVERDOSE [None]
  - SUICIDAL IDEATION [None]
  - TACHYCARDIA [None]
